FAERS Safety Report 14425944 (Version 2)
Quarter: 2018Q1

REPORT INFORMATION
  Report Type: Report from Study
  Country: US (occurrence: US)
  Receive Date: 20180123
  Receipt Date: 20180206
  Transmission Date: 20180509
  Serious: Yes (Death, Other)
  Sender: FDA-Public Use
  Company Number: US-GILEAD-2018-0316972

PATIENT
  Age: 85 Year
  Sex: Female

DRUGS (1)
  1. AMBRISENTAN [Suspect]
     Active Substance: AMBRISENTAN
     Indication: PRODUCT USED FOR UNKNOWN INDICATION
     Dosage: 5 MG, QD
     Route: 065
     Dates: start: 20140530

REACTIONS (1)
  - Death [Fatal]

NARRATIVE: CASE EVENT DATE: 20180117
